FAERS Safety Report 15540307 (Version 1)
Quarter: 2018Q4

REPORT INFORMATION
  Report Type: Spontaneous
  Country: US (occurrence: US)
  Receive Date: 20181023
  Receipt Date: 20181023
  Transmission Date: 20190205
  Serious: No
  Sender: FDA-Public Use
  Company Number: US-PFIZER INC-2018426604

PATIENT
  Age: 52 Year
  Sex: Female

DRUGS (3)
  1. LYRICA [Suspect]
     Active Substance: PREGABALIN
     Dosage: 75 (TAKE 2 OF THEM)
  2. LYRICA [Suspect]
     Active Substance: PREGABALIN
     Dosage: 75, DAILY (TAKE ONE PER DAY)
  3. LYRICA [Suspect]
     Active Substance: PREGABALIN
     Dosage: 150 MG, 1X/DAY (150MG IN THE MORNING)

REACTIONS (3)
  - Drug effect incomplete [Unknown]
  - Musculoskeletal disorder [Unknown]
  - Intentional product use issue [Unknown]
